FAERS Safety Report 25899983 (Version 2)
Quarter: 2025Q4

REPORT INFORMATION
  Report Type: Spontaneous
  Country: US (occurrence: US)
  Receive Date: 20251009
  Receipt Date: 20251110
  Transmission Date: 20260118
  Serious: No
  Sender: TOLMAR
  Company Number: US-Tolmar-TLM-2025-06889

PATIENT

DRUGS (3)
  1. ELIGARD [Suspect]
     Active Substance: LEUPROLIDE ACETATE
     Indication: Product used for unknown indication
     Dosage: DOSE NOT ADMINISTERED?GTIN: 00362935227106?SERIAL NUMBER: 1194811828354?EXPIRY DATES: -FEB-2027; -FE
     Dates: start: 20250916
  2. ELIGARD [Suspect]
     Active Substance: LEUPROLIDE ACETATE
     Dosage: REPLACEMENT DOSE
     Dates: start: 20250916
  3. DEVICE [Suspect]
     Active Substance: DEVICE
     Indication: Product used for unknown indication
     Dosage: -FEB-2027; -FEB-2027; 28-FEB-2027?NDC: 6293522710?GTIN: 00362935227106?SERIAL NUMBER: 1194811828354

REACTIONS (4)
  - Intercepted product preparation error [Unknown]
  - Device leakage [Unknown]
  - Wrong technique in product usage process [Unknown]
  - Product quality issue [Unknown]

NARRATIVE: CASE EVENT DATE: 20250916
